FAERS Safety Report 5195883-4 (Version None)
Quarter: 2007Q1

REPORT INFORMATION
  Report Type: 
  Country: None (occurrence: None)
  Receive Date: 20070102
  Receipt Date: 20061220
  Transmission Date: 20070707
  Serious: Yes (Hospitalization)
  Sender: FDA-Public Use
  Company Number: FR-GLAXOSMITHKLINE-B0451480A

PATIENT
  Sex: Male

DRUGS (2)
  1. RETROVIR [Suspect]
     Indication: ANTIVIRAL PROPHYLAXIS
     Route: 048
     Dates: start: 19980401, end: 19980605
  2. EPIVIR [Suspect]
     Indication: ANTIVIRAL PROPHYLAXIS
     Route: 048
     Dates: start: 19980401, end: 19980605

REACTIONS (11)
  - DIPLOPIA [None]
  - FATIGUE [None]
  - HYDROCEPHALUS [None]
  - NEOPLASM [None]
  - PAPILLOEDEMA [None]
  - PARESIS CRANIAL NERVE [None]
  - PINEALOBLASTOMA [None]
  - SOMNOLENCE [None]
  - STRABISMUS [None]
  - VISUAL ACUITY REDUCED [None]
  - VOMITING [None]
